FAERS Safety Report 8222602-7 (Version None)
Quarter: 2012Q1

REPORT INFORMATION
  Report Type: 
  Country: None (occurrence: None)
  Receive Date: 20120320
  Receipt Date: 20120315
  Transmission Date: 20120608
  Serious: Yes (Hospitalization)
  Sender: FDA-Public Use
  Company Number: US-TEVA-328330USA

PATIENT
  Sex: Female
  Weight: 63.56 kg

DRUGS (2)
  1. ACTIQ [Suspect]
     Indication: NEURALGIA
  2. ACTIQ [Suspect]
     Indication: FIBROMYALGIA
     Route: 048
     Dates: start: 20020101

REACTIONS (4)
  - DRUG PRESCRIBING ERROR [None]
  - KNEE OPERATION [None]
  - OFF LABEL USE [None]
  - ROAD TRAFFIC ACCIDENT [None]
